FAERS Safety Report 12179762 (Version 2)
Quarter: 2016Q2

REPORT INFORMATION
  Report Type: Report from Study
  Country: CR (occurrence: CR)
  Receive Date: 20160314
  Receipt Date: 20160411
  Transmission Date: 20160815
  Serious: Yes (Other)
  Sender: FDA-Public Use
  Company Number: PHHY2016CR034098

PATIENT
  Age: 60 Year
  Sex: Female

DRUGS (1)
  1. AFINITOR [Suspect]
     Active Substance: EVEROLIMUS
     Indication: BREAST CANCER METASTATIC
     Dosage: 10 MG, UNK
     Route: 065
     Dates: start: 201509, end: 201603

REACTIONS (7)
  - Drug ineffective [Unknown]
  - Fatigue [Unknown]
  - Neoplasm [Unknown]
  - Weight decreased [Unknown]
  - Hypersomnia [Unknown]
  - Oral mucosal blistering [Unknown]
  - Hepatic neoplasm [Unknown]
